FAERS Safety Report 5525717-7 (Version None)
Quarter: 2007Q4

REPORT INFORMATION
  Report Type: 
  Country: None (occurrence: None)
  Receive Date: 20071126
  Receipt Date: 20070727
  Transmission Date: 20080405
  Serious: Yes (Other)
  Sender: FDA-Public Use
  Company Number: US-ASTRAZENECA-2007UW01963

PATIENT
  Age: 20850 Day
  Sex: Female
  Weight: 77.7 kg

DRUGS (41)
  1. SEROQUEL [Suspect]
     Indication: SLEEP DISORDER
     Dosage: 25 MG TO 100 MG
     Route: 048
     Dates: start: 20031009, end: 20060320
  2. ZOLOFT [Concomitant]
  3. NEURONTIN [Concomitant]
  4. PYRIDOSTIGM [Concomitant]
  5. POTASSIUM CHLORIDE [Concomitant]
  6. PROCHLORPERAZINE [Concomitant]
  7. CELEBREX [Concomitant]
  8. SYNTHROID [Concomitant]
  9. MIRTAZAPINE [Concomitant]
  10. PREDNISONE TAB [Concomitant]
  11. LEVAQUIN [Concomitant]
  12. BIAXIN [Concomitant]
  13. XOPENEX [Concomitant]
  14. METFORMIN HCL [Concomitant]
  15. NICOTROL [Concomitant]
  16. LORATADINE [Concomitant]
  17. PLAVIX [Concomitant]
  18. MOBIC [Concomitant]
  19. FUROSEMIDE [Concomitant]
  20. COMBIVENT [Concomitant]
  21. IBUPROFEN [Concomitant]
  22. SULFASALAZIN [Concomitant]
  23. APAP W/ CODEINE [Concomitant]
  24. MEPERIDINE HCL [Concomitant]
  25. MECLIZINE [Concomitant]
  26. CYMBALTA [Concomitant]
  27. NEXIUM [Concomitant]
  28. URSODIOL [Concomitant]
  29. KETEK [Concomitant]
  30. METHYLPRED [Concomitant]
  31. DUONEB [Concomitant]
  32. ZETIA [Concomitant]
  33. LEVOTHYROXINE SODIUM [Concomitant]
  34. HUMALOG [Concomitant]
  35. NYSTATIN [Concomitant]
  36. FEXOFENADINE [Concomitant]
  37. AMITRIPTYLINE HCL [Concomitant]
  38. CRESTOR [Concomitant]
  39. SERTRALINE [Concomitant]
  40. GABAPENTIN [Concomitant]
  41. CHANTIX [Concomitant]

REACTIONS (4)
  - BLOOD CHOLESTEROL INCREASED [None]
  - GALLBLADDER OPERATION [None]
  - SENSATION OF FOREIGN BODY [None]
  - TYPE 2 DIABETES MELLITUS [None]
